FAERS Safety Report 5718891-0 (Version None)
Quarter: 2008Q2

REPORT INFORMATION
  Report Type: 
  Country: None (occurrence: None)
  Receive Date: 20080425
  Receipt Date: 20080418
  Transmission Date: 20081010
  Serious: Yes (Hospitalization, Disabling)
  Sender: FDA-Public Use
  Company Number: PT-MERCK-0804PRT00006

PATIENT
  Age: 57 Year
  Sex: Male

DRUGS (9)
  1. INVANZ [Suspect]
     Indication: CHOLECYSTITIS ACUTE
     Route: 030
     Dates: start: 20080407, end: 20080409
  2. INVANZ [Suspect]
     Indication: CHOLECYSTECTOMY
     Route: 030
     Dates: start: 20080407, end: 20080409
  3. DIPYRONE MAGNESIUM [Concomitant]
     Indication: ANALGESIA
     Route: 048
     Dates: start: 20080407, end: 20080408
  4. TRAMADOL HCL [Concomitant]
     Indication: ANALGESIA
     Route: 048
     Dates: start: 20080407, end: 20080407
  5. APO-METOCLOPRAMIDA [Concomitant]
     Indication: ANTIEMETIC SUPPORTIVE CARE
     Route: 048
     Dates: start: 20080407, end: 20080408
  6. OMEPRAZOLE [Concomitant]
     Indication: GASTRIC DISORDER
     Route: 048
     Dates: start: 20080407, end: 20080407
  7. OMEPRAZOLE [Concomitant]
     Route: 048
     Dates: start: 20080407
  8. LORAZEPAM [Concomitant]
     Indication: INSOMNIA
     Route: 048
     Dates: start: 20080407
  9. LORAZEPAM [Concomitant]
     Indication: ANXIETY
     Route: 048
     Dates: start: 20080407

REACTIONS (3)
  - NEPHRITIS INTERSTITIAL [None]
  - OLIGURIA [None]
  - RENAL FAILURE ACUTE [None]
